FAERS Safety Report 16189140 (Version 2)
Quarter: 2019Q2

REPORT INFORMATION
  Report Type: Spontaneous
  Country: US (occurrence: US)
  Receive Date: 20190412
  Receipt Date: 20190412
  Transmission Date: 20190711
  Serious: No
  Sender: FDA-Public Use
  Company Number: US-GLAXOSMITHKLINE-US2019GSK041012

PATIENT
  Sex: Female

DRUGS (1)
  1. SUMATRIPTAN (SUMATRIPTAN SUCCINATE) SOLUTION FOR INJECTION IN PRE-FILL [Suspect]
     Active Substance: SUMATRIPTAN
     Indication: PRODUCT USED FOR UNKNOWN INDICATION
     Dosage: 4MG/2X0.5ML KIT X 1
     Route: 042

REACTIONS (4)
  - Device malfunction [Unknown]
  - Prescription drug used without a prescription [Unknown]
  - Inability to afford medication [Unknown]
  - Wrong technique in device usage process [Unknown]
